FAERS Safety Report 12457435 (Version 2)
Quarter: 2016Q3

REPORT INFORMATION
  Report Type: Spontaneous
  Country: US (occurrence: US)
  Receive Date: 20160610
  Receipt Date: 20160826
  Transmission Date: 20161109
  Serious: Yes (Hospitalization, Other)
  Sender: FDA-Public Use
  Company Number: US-TEVA-667553USA

PATIENT
  Age: 47 Year
  Sex: Female

DRUGS (5)
  1. LITHIUM. [Interacting]
     Active Substance: LITHIUM
     Route: 065
  2. DOXYCYCLINE. [Suspect]
     Active Substance: DOXYCYCLINE
     Indication: PNEUMONIA
     Route: 065
  3. KLONOPIN [Concomitant]
     Active Substance: CLONAZEPAM
  4. ARIPIPRAZOLE. [Concomitant]
     Active Substance: ARIPIPRAZOLE
  5. ESCITALOPRAM [Concomitant]
     Active Substance: ESCITALOPRAM OXALATE

REACTIONS (6)
  - Drug interaction [Unknown]
  - Toxicity to various agents [Unknown]
  - Mental status changes [Recovered/Resolved]
  - Nephrogenic diabetes insipidus [Recovering/Resolving]
  - Resting tremor [Unknown]
  - Aphasia [Unknown]
